FAERS Safety Report 7651709-8 (Version None)
Quarter: 2011Q3

REPORT INFORMATION
  Report Type: 
  Country: None (occurrence: None)
  Receive Date: 20110802
  Receipt Date: 20110729
  Transmission Date: 20111222
  Serious: Yes (Other)
  Sender: FDA-Public Use
  Company Number: AU-ABBOTT-11P-008-0837508-00

PATIENT
  Sex: Female
  Weight: 55 kg

DRUGS (3)
  1. HUMIRA [Suspect]
     Dates: end: 20091101
  2. HUMIRA [Suspect]
     Indication: CROHN'S DISEASE
     Dates: start: 20090101
  3. HUMIRA [Suspect]

REACTIONS (2)
  - CARDIAC FAILURE CHRONIC [None]
  - PULMONARY OEDEMA [None]
